FAERS Safety Report 13637004 (Version 2)
Quarter: 2017Q3

REPORT INFORMATION
  Report Type: Spontaneous
  Country: FR (occurrence: FR)
  Receive Date: 20170609
  Receipt Date: 20170718
  Transmission Date: 20171127
  Serious: Yes (Life-Threatening, Hospitalization, Other)
  Sender: FDA-Public Use
  Company Number: FR-AUROBINDO-AUR-APL-2017-35094

PATIENT
  Age: 67 Year
  Sex: Female

DRUGS (2)
  1. IRBESARTAN. [Concomitant]
     Active Substance: IRBESARTAN
     Indication: HYPERTENSION
     Dosage: 300 MG, UNK
     Route: 065
  2. METFORMIN [Suspect]
     Active Substance: METFORMIN HYDROCHLORIDE
     Indication: TYPE 2 DIABETES MELLITUS
     Dosage: 850 MG, TWO TIMES A DAY
     Route: 065

REACTIONS (7)
  - Acute kidney injury [Recovering/Resolving]
  - Vomiting [Unknown]
  - Hypoglycaemia [Recovering/Resolving]
  - Abdominal pain [Unknown]
  - Nausea [Unknown]
  - Lactic acidosis [Recovering/Resolving]
  - Somnolence [Unknown]
